FAERS Safety Report 6427123-X (Version None)
Quarter: 2009Q4

REPORT INFORMATION
  Report Type: 
  Country: None (occurrence: None)
  Receive Date: 20091030
  Receipt Date: 20091016
  Transmission Date: 20100525
  Serious: Yes (Other)
  Sender: FDA-Public Use
  Company Number: 2009AC000262

PATIENT
  Sex: Male

DRUGS (13)
  1. DIGOXIN [Suspect]
     Dosage: 125 MCG;UNKNOWN;PO
     Route: 048
     Dates: start: 20070801
  2. COREG [Concomitant]
  3. AMIODARONE [Concomitant]
  4. COUMADIN [Concomitant]
  5. FUROSEMIDE [Concomitant]
  6. CELEBREX [Concomitant]
  7. INDOMETHACIN [Concomitant]
  8. *HYDROCODONE [Concomitant]
  9. *PROPOXYPHEN [Concomitant]
  10. LISINOPRIL [Concomitant]
  11. METOPROLOL TARTRATE [Concomitant]
  12. LIPITOR [Concomitant]
  13. RANITIDINE [Concomitant]

REACTIONS (2)
  - ECONOMIC PROBLEM [None]
  - INJURY [None]
